FAERS Safety Report 18490060 (Version 2)
Quarter: 2021Q1

REPORT INFORMATION
  Report Type: Spontaneous
  Country: US (occurrence: US)
  Receive Date: 20201111
  Receipt Date: 20210125
  Transmission Date: 20210419
  Serious: No
  Sender: FDA-Public Use
  Company Number: US-GLAXOSMITHKLINE-US2020AMR221165

PATIENT
  Sex: Female

DRUGS (2)
  1. ZEJULA [Suspect]
     Active Substance: NIRAPARIB
     Indication: OVARIAN CANCER
     Dosage: 2 DF, QD (100MG, TAKE 2 CAPSULES EVERY NIGHT)
     Route: 048
     Dates: start: 20201022
  2. ZEJULA [Suspect]
     Active Substance: NIRAPARIB
     Dosage: 200 MG, QD

REACTIONS (8)
  - Nausea [Recovering/Resolving]
  - Dysgeusia [Not Recovered/Not Resolved]
  - Blood count abnormal [Unknown]
  - Condition aggravated [Recovering/Resolving]
  - Decreased appetite [Unknown]
  - Weight increased [Unknown]
  - Fatigue [Unknown]
  - Taste disorder [Recovered/Resolved]

NARRATIVE: CASE EVENT DATE: 2020
